FAERS Safety Report 23530267 (Version 19)
Quarter: 2025Q4

REPORT INFORMATION
  Report Type: Report from Study
  Country: US (occurrence: None)
  Receive Date: 20240216
  Receipt Date: 20251020
  Transmission Date: 20260118
  Serious: Yes (Other)
  Sender: UCB
  Company Number: US-UCBSA-2024007477

PATIENT
  Age: 7 Year
  Weight: 26.3 kg

DRUGS (8)
  1. FENFLURAMINE [Suspect]
     Active Substance: FENFLURAMINE
     Indication: Lennox-Gastaut syndrome
     Dosage: 14.62MG/DAY
  2. FENFLURAMINE [Suspect]
     Active Substance: FENFLURAMINE
     Indication: Seizure
     Dosage: 3.30 MILLILITER, 2X/DAY (BID)
  3. FENFLURAMINE [Suspect]
     Active Substance: FENFLURAMINE
     Dosage: 4.8 MILLILITER, 2X/DAY (BID)
  4. FENFLURAMINE [Suspect]
     Active Substance: FENFLURAMINE
     Dosage: 3.30 MILLILITER, 2X/DAY (BID)
  5. FENFLURAMINE [Suspect]
     Active Substance: FENFLURAMINE
     Dosage: 3.3 MILLILITER, 2X/DAY (BID)
  6. FENFLURAMINE [Suspect]
     Active Substance: FENFLURAMINE
     Dosage: 3.3 MILLILITER, 2X/DAY (BID)
  7. FENFLURAMINE [Suspect]
     Active Substance: FENFLURAMINE
     Dosage: 3.3 MILLILITER, 2X/DAY (BID)
  8. FENFLURAMINE [Suspect]
     Active Substance: FENFLURAMINE
     Dosage: 0.7MG/KG/DAY

REACTIONS (15)
  - Seizure [Unknown]
  - Pulmonary valve incompetence [Unknown]
  - Heart valve incompetence [Not Recovered/Not Resolved]
  - Tricuspid valve incompetence [Not Recovered/Not Resolved]
  - Neurodevelopmental disorder [Unknown]
  - Myoclonic epilepsy [Not Recovered/Not Resolved]
  - Hypotension [Unknown]
  - Diarrhoea [Recovered/Resolved]
  - Hiccups [Not Recovered/Not Resolved]
  - Eating disorder [Unknown]
  - Behaviour disorder [Not Recovered/Not Resolved]
  - Contusion [Not Recovered/Not Resolved]
  - Gastrointestinal tube insertion [Recovered/Resolved]
  - Gastrostomy [Recovered/Resolved]
  - Irritability [Not Recovered/Not Resolved]
